FAERS Safety Report 17040623 (Version 2)
Quarter: 2019Q4

REPORT INFORMATION
  Report Type: Report from Study
  Country: JP (occurrence: JP)
  Receive Date: 20191117
  Receipt Date: 20191215
  Transmission Date: 20200122
  Serious: Yes (Death, Other)
  Sender: FDA-Public Use
  Company Number: JP-BEH-2019109547

PATIENT
  Age: 67 Year
  Sex: Male
  Weight: 80 kg

DRUGS (3)
  1. BERIPLEX P/N [Suspect]
     Active Substance: COAGULATION FACTOR IX HUMAN\COAGULATION FACTOR VII HUMAN\COAGULATION FACTOR X HUMAN\PROTEIN C\PROTEIN S HUMAN\PROTHROMBIN
     Indication: HAEMORRHAGE
     Dosage: 2000 INTERNATIONAL UNIT
     Route: 042
     Dates: start: 20180510
  2. BERIPLEX P/N [Suspect]
     Active Substance: COAGULATION FACTOR IX HUMAN\COAGULATION FACTOR VII HUMAN\COAGULATION FACTOR X HUMAN\PROTEIN C\PROTEIN S HUMAN\PROTHROMBIN
     Indication: HAEMORRHAGE
     Dosage: 2000 INTERNATIONAL UNIT
     Route: 042
     Dates: start: 20180510
  3. KAYTWO N [Concomitant]
     Active Substance: MENATETRENONE
     Indication: ANTICOAGULANT THERAPY
     Dosage: 20 MILLIGRAM, TOT
     Route: 065
     Dates: start: 20180510, end: 20180510

REACTIONS (2)
  - Hydrocephalus [Unknown]
  - Cerebral haemorrhage [Fatal]
